FAERS Safety Report 18514993 (Version 4)
Quarter: 2022Q1

REPORT INFORMATION
  Report Type: Spontaneous
  Country: US (occurrence: US)
  Receive Date: 20201118
  Receipt Date: 20220223
  Transmission Date: 20220424
  Serious: No
  Sender: FDA-Public Use
  Company Number: US-UCBSA-2019055698

PATIENT
  Sex: Male

DRUGS (2)
  1. VIMPAT [Interacting]
     Active Substance: LACOSAMIDE
     Indication: Product used for unknown indication
     Dosage: UNK
  2. KEPPRA [Suspect]
     Active Substance: LEVETIRACETAM
     Indication: Product used for unknown indication
     Dosage: TABLETS AND ORAL SOLUTION

REACTIONS (3)
  - Balance disorder [Unknown]
  - Weight decreased [Unknown]
  - Drug interaction [Unknown]
